FAERS Safety Report 6607227-9 (Version None)
Quarter: 2010Q1

REPORT INFORMATION
  Report Type: 
  Country: None (occurrence: None)
  Receive Date: 20100227
  Receipt Date: 20100219
  Transmission Date: 20100710
  Serious: Yes (Hospitalization)
  Sender: FDA-Public Use
  Company Number: US-JNJFOC-20100209764

PATIENT
  Sex: Female
  Weight: 61.24 kg

DRUGS (4)
  1. DURAGESIC-100 [Suspect]
     Indication: PAIN
     Route: 062
  2. DURAGESIC-100 [Suspect]
     Route: 062
  3. HYDROCODONE [Concomitant]
     Indication: PAIN
     Route: 048
  4. MOBIC [Concomitant]
     Indication: PAIN
     Route: 048

REACTIONS (5)
  - ANGINA PECTORIS [None]
  - CARDIAC DISORDER [None]
  - DEVICE FAILURE [None]
  - HEART RATE DECREASED [None]
  - HYPOTENSION [None]
